FAERS Safety Report 21457377 (Version 1)
Quarter: 2022Q4

REPORT INFORMATION
  Report Type: Spontaneous
  Country: IR (occurrence: IR)
  Receive Date: 20221014
  Receipt Date: 20221014
  Transmission Date: 20230113
  Serious: Yes (Hospitalization, Other)
  Sender: FDA-Public Use
  Company Number: IR-Accord-281545

PATIENT
  Age: 47 Year
  Sex: Male

DRUGS (1)
  1. AMPHETAMINE [Suspect]
     Active Substance: AMPHETAMINE
     Indication: Product used for unknown indication
     Dosage: INGESTED TWO PACKETS OF AP

REACTIONS (9)
  - Restlessness [Unknown]
  - Agitation [Recovering/Resolving]
  - Seizure [Unknown]
  - Hypertension [Unknown]
  - Mental status changes [Recovering/Resolving]
  - Sinus tachycardia [Unknown]
  - Abdominal pain [Unknown]
  - Toxicity to various agents [Unknown]
  - Abdominal discomfort [Unknown]
